FAERS Safety Report 18810440 (Version 1)
Quarter: 2021Q1

REPORT INFORMATION
  Report Type: Spontaneous
  Country: US (occurrence: US)
  Receive Date: 20210129
  Receipt Date: 20210129
  Transmission Date: 20210419
  Serious: No
  Sender: FDA-Public Use
  Company Number: US-PFIZER INC-2021079107

PATIENT
  Age: 82 Year
  Sex: Male
  Weight: 84.37 kg

DRUGS (2)
  1. CIPROFLOXACIN. [Suspect]
     Active Substance: CIPROFLOXACIN
     Indication: PAIN
  2. CIPROFLOXACIN. [Suspect]
     Active Substance: CIPROFLOXACIN
     Indication: DYSURIA
     Dosage: 500 MG (HE HAS TAKEN IT TWICE HE IS NOT GOING TO TAKE IT ANYMORE)

REACTIONS (1)
  - Dizziness [Unknown]
